FAERS Safety Report 7386396-X (Version None)
Quarter: 2011Q1

REPORT INFORMATION
  Report Type: 
  Country: None (occurrence: None)
  Receive Date: 20110331
  Receipt Date: 20110325
  Transmission Date: 20110831
  Serious: Yes (Hospitalization)
  Sender: FDA-Public Use
  Company Number: US-GILEAD-2011-0035156

PATIENT
  Sex: Female

DRUGS (8)
  1. PRILOSEC [Concomitant]
  2. LETAIRIS [Suspect]
     Indication: PULMONARY HYPERTENSION
     Route: 048
     Dates: start: 20080808
  3. SINGULAIR [Concomitant]
  4. LOPRESSOR [Concomitant]
  5. KLONOPIN [Concomitant]
  6. MECLIZINE [Concomitant]
  7. LASIX [Concomitant]
  8. PRINIVIL [Concomitant]

REACTIONS (1)
  - LOCAL SWELLING [None]
